FAERS Safety Report 7478499-6 (Version None)
Quarter: 2011Q2

REPORT INFORMATION
  Report Type: 
  Country: None (occurrence: None)
  Receive Date: 20110513
  Receipt Date: 20110504
  Transmission Date: 20111010
  Serious: Yes (Other)
  Sender: FDA-Public Use
  Company Number: CH-ASTRAZENECA-2011SE25814

PATIENT
  Age: 25 Year
  Sex: Male

DRUGS (4)
  1. PROGRAF [Concomitant]
  2. CELLCEPT [Concomitant]
  3. LYRICA [Concomitant]
  4. PROPOFOL [Suspect]
     Dosage: 20 MG EVERY 30 SECONDS
     Route: 040
     Dates: start: 20110228, end: 20110228

REACTIONS (1)
  - AGGRESSION [None]
